FAERS Safety Report 15305045 (Version 1)
Quarter: 2018Q3

REPORT INFORMATION
  Report Type: Spontaneous
  Country: US (occurrence: US)
  Receive Date: 20180810
  Receipt Date: 20180810
  Transmission Date: 20181010
  Serious: No
  Sender: FDA-Public Use
  Company Number: None

PATIENT
  Age: 48 Year
  Sex: Female

DRUGS (1)
  1. DIHYDROERGOT INJ [Suspect]
     Active Substance: DIHYDROERGOTAMINE MESYLATE

REACTIONS (3)
  - Hypokalaemia [None]
  - Drug ineffective [None]
  - Rash [None]

NARRATIVE: CASE EVENT DATE: 20180809
